FAERS Safety Report 14024236 (Version 1)
Quarter: 2017Q3

REPORT INFORMATION
  Report Type: Report from Study
  Country: US (occurrence: US)
  Receive Date: 20170929
  Receipt Date: 20170929
  Transmission Date: 20171128
  Serious: Yes (Hospitalization, Other)
  Sender: FDA-Public Use
  Company Number: US-JNJFOC-20161224528

PATIENT
  Age: 76 Year
  Sex: Male

DRUGS (20)
  1. IMBRUVICA [Suspect]
     Active Substance: IBRUTINIB
     Indication: CHRONIC LYMPHOCYTIC LEUKAEMIA
     Route: 048
     Dates: start: 20161222
  2. FENOFIBRATE. [Concomitant]
     Active Substance: FENOFIBRATE
  3. ALLOPURINOL. [Concomitant]
     Active Substance: ALLOPURINOL
  4. ALBUTEROL SULFATE. [Concomitant]
     Active Substance: ALBUTEROL SULFATE
  5. PRILOSEC [Concomitant]
     Active Substance: OMEPRAZOLE MAGNESIUM
  6. VITAMIN D [Concomitant]
     Active Substance: CHOLECALCIFEROL
  7. MULTIVITAMINS [Concomitant]
     Active Substance: VITAMINS
  8. SALBUTAMOL [Concomitant]
     Active Substance: ALBUTEROL
  9. POTASSIUM CHLORATE [Concomitant]
     Active Substance: POTASSIUM CHLORATE
  10. IMBRUVICA [Suspect]
     Active Substance: IBRUTINIB
     Indication: CHRONIC LYMPHOCYTIC LEUKAEMIA
     Route: 048
     Dates: start: 20170119
  11. CARDIZEM [Concomitant]
     Active Substance: DILTIAZEM HYDROCHLORIDE
  12. COUMADIN [Concomitant]
     Active Substance: WARFARIN SODIUM
  13. IMBRUVICA [Suspect]
     Active Substance: IBRUTINIB
     Indication: CHRONIC LYMPHOCYTIC LEUKAEMIA
     Route: 048
     Dates: start: 20161221
  14. SYMBICORT [Concomitant]
     Active Substance: BUDESONIDE\FORMOTEROL FUMARATE DIHYDRATE
  15. MUCINEX [Concomitant]
     Active Substance: GUAIFENESIN
  16. NASONEX [Concomitant]
     Active Substance: MOMETASONE FUROATE
  17. DALIRESP [Concomitant]
     Active Substance: ROFLUMILAST
  18. TOPROL XL [Concomitant]
     Active Substance: METOPROLOL SUCCINATE
  19. SPIRIVA [Concomitant]
     Active Substance: TIOTROPIUM BROMIDE MONOHYDRATE
  20. FOLIC ACID. [Concomitant]
     Active Substance: FOLIC ACID

REACTIONS (16)
  - Fatigue [Unknown]
  - Contusion [Not Recovered/Not Resolved]
  - Lung disorder [Unknown]
  - Increased appetite [Unknown]
  - Pneumonia [Unknown]
  - Tooth disorder [Unknown]
  - Weight decreased [Unknown]
  - Pruritus [Unknown]
  - Rash [Unknown]
  - Asthenia [Unknown]
  - Epistaxis [Unknown]
  - Jaw disorder [Unknown]
  - Arthropathy [Not Recovered/Not Resolved]
  - Adverse event [Unknown]
  - Cyanosis [Not Recovered/Not Resolved]
  - Peripheral swelling [Not Recovered/Not Resolved]

NARRATIVE: CASE EVENT DATE: 20161221
